FAERS Safety Report 22913103 (Version 5)
Quarter: 2024Q4

REPORT INFORMATION
  Report Type: Report from Study
  Country: CA (occurrence: CA)
  Receive Date: 20230906
  Receipt Date: 20241007
  Transmission Date: 20250115
  Serious: Yes (Other)
  Sender: BIOCON
  Company Number: CA-MYLANLABS-2023M1092671

PATIENT

DRUGS (2)
  1. HULIO [Suspect]
     Active Substance: ADALIMUMAB-FKJP
     Indication: Crohn^s disease
     Dosage: 40 MILLIGRAM, QW (EVERY WEEKS)
     Route: 058
     Dates: start: 20210927
  2. HULIO [Suspect]
     Active Substance: ADALIMUMAB-FKJP
     Dosage: 40 MILLIGRAM, BIWEEKLY
     Route: 058
     Dates: start: 20210927

REACTIONS (11)
  - Crohn^s disease [Unknown]
  - Uveitis [Unknown]
  - Aphthous ulcer [Unknown]
  - Dry eye [Unknown]
  - Eye pruritus [Unknown]
  - Malaise [Unknown]
  - Vision blurred [Unknown]
  - Diarrhoea [Unknown]
  - Arthralgia [Unknown]
  - Abdominal pain [Unknown]
  - Drug ineffective [Unknown]
